FAERS Safety Report 13186277 (Version 2)
Quarter: 2017Q1

REPORT INFORMATION
  Report Type: Spontaneous
  Country: US (occurrence: US)
  Receive Date: 20170204
  Receipt Date: 20170209
  Transmission Date: 20170428
  Serious: No
  Sender: FDA-Public Use
  Company Number: US-BRISTOL-MYERS SQUIBB COMPANY-BMS-2017-005429

PATIENT
  Sex: Female

DRUGS (1)
  1. ORENCIA [Suspect]
     Active Substance: ABATACEPT
     Indication: RHEUMATOID ARTHRITIS
     Dosage: 125 MG, QWK
     Route: 058
     Dates: start: 20161110, end: 20170124

REACTIONS (6)
  - Rash [Unknown]
  - Hypersensitivity [Unknown]
  - Dermatitis [Unknown]
  - Upper respiratory tract infection [Unknown]
  - Off label use [Unknown]
  - Herpes zoster [Unknown]
